FAERS Safety Report 5737202-8 (Version None)
Quarter: 2008Q2

REPORT INFORMATION
  Report Type: 
  Country: None (occurrence: None)
  Receive Date: 20080512
  Receipt Date: 20080512
  Transmission Date: 20081010
  Serious: Yes (Hospitalization)
  Sender: FDA-Public Use
  Company Number: None

PATIENT
  Age: 60 Year
  Sex: Male
  Weight: 115.4 kg

DRUGS (2)
  1. INSULIN [Suspect]
     Indication: DIABETES MELLITUS
     Dosage: 80UNITS TID SQ
     Route: 058
     Dates: start: 20080119, end: 20080122
  2. INSULIN [Suspect]
     Indication: DIABETES MELLITUS
     Dosage: 50UNITS BID SQ
     Route: 058
     Dates: start: 20080119, end: 20080121

REACTIONS (5)
  - BLOOD GLUCOSE INCREASED [None]
  - CONFUSIONAL STATE [None]
  - CONVULSION [None]
  - GRAND MAL CONVULSION [None]
  - HYPOGLYCAEMIA [None]
